FAERS Safety Report 23170127 (Version 2)
Quarter: 2024Q3

REPORT INFORMATION
  Report Type: Report from Study
  Country: DE (occurrence: DE)
  Receive Date: 20231110
  Receipt Date: 20240701
  Transmission Date: 20241017
  Serious: Yes (Congenital Anomaly, Other)
  Sender: UCB
  Company Number: DE-UCBSA-2023053597

PATIENT

DRUGS (1)
  1. BIMEKIZUMAB [Suspect]
     Active Substance: BIMEKIZUMAB
     Indication: Psoriasis
     Dosage: 320 MILLIGRAM, EV 4 WEEKS
     Route: 064
     Dates: start: 20230323, end: 20230522

REACTIONS (3)
  - Foetal chromosome abnormality [Unknown]
  - Maternal exposure during pregnancy [Unknown]
  - Maternal exposure before pregnancy [Unknown]

NARRATIVE: CASE EVENT DATE: 20230101
